FAERS Safety Report 7513685-8 (Version None)
Quarter: 2011Q2

REPORT INFORMATION
  Report Type: 
  Country: None (occurrence: None)
  Receive Date: 20110531
  Receipt Date: 20110526
  Transmission Date: 20111010
  Serious: Yes (Hospitalization, Other)
  Sender: FDA-Public Use
  Company Number: HU-GENZYME-THYM-1002494

PATIENT
  Age: 1 Year
  Sex: Male

DRUGS (4)
  1. THYMOGLOBULIN [Suspect]
     Indication: BONE MARROW CONDITIONING REGIMEN
     Dosage: 2.5 MG/KG, UNK
     Route: 042
  2. BUSULFAN [Concomitant]
     Indication: BONE MARROW CONDITIONING REGIMEN
     Dosage: 0.8 MG/KG, UNK
     Route: 065
  3. CYCLOPHOSPHAMIDE [Concomitant]
     Indication: BONE MARROW CONDITIONING REGIMEN
     Dosage: 60 MG/KG, UNK
     Route: 065
  4. MELPHALAN HYDROCHLORIDE [Concomitant]
     Indication: BONE MARROW CONDITIONING REGIMEN
     Dosage: 140 MG/KG, ONCE
     Route: 065

REACTIONS (3)
  - CYTOKINE STORM [None]
  - ACUTE GRAFT VERSUS HOST DISEASE [None]
  - PNEUMONITIS [None]
